FAERS Safety Report 5886840-0 (Version None)
Quarter: 2008Q3

REPORT INFORMATION
  Report Type: 
  Country: None (occurrence: None)
  Receive Date: 20080915
  Receipt Date: 20080828
  Transmission Date: 20090109
  Serious: Yes (Hospitalization)
  Sender: FDA-Public Use
  Company Number: 8035318

PATIENT
  Sex: Male

DRUGS (10)
  1. KEPPRA [Suspect]
     Indication: EPILEPSY
  2. KEPPRA [Suspect]
     Indication: EPILEPSY
     Dosage: 2750 MG PO
     Route: 048
     Dates: start: 20070125
  3. FURIX [Concomitant]
  4. LAMICTAL [Concomitant]
  5. SELOZOK [Concomitant]
  6. COZAAR [Concomitant]
  7. DIGOXIN [Concomitant]
  8. SIMVASTATIN [Concomitant]
  9. KALEORID [Concomitant]
  10. MAREVAN [Concomitant]

REACTIONS (2)
  - CONVULSION [None]
  - DYSTONIA [None]
